FAERS Safety Report 15333503 (Version 5)
Quarter: 2019Q1

REPORT INFORMATION
  Report Type: Report from Study
  Country: EC (occurrence: EC)
  Receive Date: 20180830
  Receipt Date: 20190130
  Transmission Date: 20190417
  Serious: Yes (Hospitalization, Other)
  Sender: FDA-Public Use
  Company Number: EC-INCYTE CORPORATION-2016IN001579

PATIENT

DRUGS (4)
  1. JAKAVI [Suspect]
     Active Substance: RUXOLITINIB
     Dosage: 15 MG,UNK (ALTERNATING DOSAGE OF 15 MG AND 30 MG)
     Route: 048
     Dates: start: 20160812, end: 20161025
  2. JAKAVI [Suspect]
     Active Substance: RUXOLITINIB
     Dosage: 15 MG, BID
     Route: 048
     Dates: start: 20161026
  3. JAKAVI [Suspect]
     Active Substance: RUXOLITINIB
     Indication: MYELOFIBROSIS
     Dosage: 15 MG, QD
     Route: 048
     Dates: start: 20160212, end: 20160811
  4. JAKAVI [Suspect]
     Active Substance: RUXOLITINIB
     Dosage: UNK
     Route: 048
     Dates: start: 20180124

REACTIONS (18)
  - Inappropriate schedule of product administration [Unknown]
  - Hypoacusis [Not Recovered/Not Resolved]
  - Deafness [Not Recovered/Not Resolved]
  - Renal disorder [Recovered/Resolved]
  - Bronchitis [Recovered/Resolved]
  - Epistaxis [Unknown]
  - Fatigue [Recovering/Resolving]
  - Peripheral swelling [Recovered/Resolved]
  - Haematoma [Unknown]
  - Concomitant disease aggravated [Not Recovered/Not Resolved]
  - Blood creatinine increased [Recovered/Resolved]
  - Influenza [Recovering/Resolving]
  - Pyrexia [Recovering/Resolving]
  - Fluid retention [Recovered/Resolved]
  - Secretion discharge [Recovering/Resolving]
  - Muscle spasms [Recovered/Resolved]
  - Chronic kidney disease [Recovering/Resolving]
  - Contusion [Not Recovered/Not Resolved]

NARRATIVE: CASE EVENT DATE: 201710
